FAERS Safety Report 10548834 (Version 1)
Quarter: 2014Q4

REPORT INFORMATION
  Report Type: Spontaneous
  Country: US (occurrence: US)
  Receive Date: 20141028
  Receipt Date: 20141028
  Transmission Date: 20150529
  Serious: Yes (Hospitalization)
  Sender: FDA-Public Use
  Company Number: US-ACTAVIS-2014-22641

PATIENT
  Age: 32 Year
  Sex: Female

DRUGS (1)
  1. FENTANYL-100 (WATSON LABORATORIES) [Suspect]
     Active Substance: FENTANYL
     Indication: MIGRAINE
     Dosage: 1 PATCH Q2DAYS
     Route: 062
     Dates: start: 2011

REACTIONS (2)
  - Transient ischaemic attack [Recovered/Resolved]
  - Dizziness [Recovered/Resolved]

NARRATIVE: CASE EVENT DATE: 201410
